FAERS Safety Report 10223444 (Version 2)
Quarter: 2014Q3

REPORT INFORMATION
  Report Type: Report from Study
  Country: DE (occurrence: DE)
  Receive Date: 20140609
  Receipt Date: 20140905
  Transmission Date: 20150326
  Serious: Yes (Death)
  Sender: FDA-Public Use
  Company Number: DE-ROCHE-1413496

PATIENT
  Age: 67 Year
  Sex: Female

DRUGS (2)
  1. PREDNISOLON [Concomitant]
     Active Substance: PREDNISOLONE
     Route: 065
     Dates: end: 201404
  2. TOCILIZUMAB [Suspect]
     Active Substance: TOCILIZUMAB
     Indication: RHEUMATOID ARTHRITIS
     Route: 065
     Dates: end: 20140409

REACTIONS (5)
  - Peritonitis [Fatal]
  - Large intestine perforation [Fatal]
  - Colonic abscess [Fatal]
  - Rectal adenocarcinoma [Fatal]
  - Septic shock [Fatal]

NARRATIVE: CASE EVENT DATE: 20140423
